FAERS Safety Report 19419542 (Version 3)
Quarter: 2021Q2

REPORT INFORMATION
  Report Type: Report from Study
  Country: US (occurrence: US)
  Receive Date: 20210615
  Receipt Date: 20210630
  Transmission Date: 20210717
  Serious: Yes (Death, Hospitalization)
  Sender: FDA-Public Use
  Company Number: US-ROCHE-2845764

PATIENT
  Age: 80 Year
  Sex: Female
  Weight: 106.5 kg

DRUGS (4)
  1. GAZYVA [Suspect]
     Active Substance: OBINUTUZUMAB
     Dosage: C1D2
     Route: 042
  2. IBRUTINIB [Suspect]
     Active Substance: IBRUTINIB
     Indication: CHRONIC LYMPHOCYTIC LEUKAEMIA
     Dosage: TOTAL DOSE ADMINISTERED THIS COURSE: 21000 MG?LAST ADMINISTERED DATE: 20/MAY/2021
     Route: 048
     Dates: start: 20200819
  3. GAZYVA [Suspect]
     Active Substance: OBINUTUZUMAB
     Indication: CHRONIC LYMPHOCYTIC LEUKAEMIA
     Dosage: C1D1?LAST ADMINISTERED DATE: 06/JAN/2021
     Route: 042
  4. GAZYVA [Suspect]
     Active Substance: OBINUTUZUMAB
     Dosage: C1D8 + C1D15, C2?6D1
     Route: 042

REACTIONS (2)
  - COVID-19 pneumonia [Fatal]
  - Hypoxia [Not Recovered/Not Resolved]

NARRATIVE: CASE EVENT DATE: 20210520
